FAERS Safety Report 4562094-2 (Version None)
Quarter: 2005Q1

REPORT INFORMATION
  Report Type: 
  Country: None (occurrence: None)
  Receive Date: 20050121
  Receipt Date: 20050103
  Transmission Date: 20050727
  Serious: Yes (Hospitalization)
  Sender: FDA-Public Use
  Company Number: 2004BI000965

PATIENT
  Age: 46 Year
  Sex: Male
  Weight: 104.3273 kg

DRUGS (5)
  1. AVONEX [Suspect]
     Indication: MULTIPLE SCLEROSIS
     Dosage: 30 UG; QW; IM
     Route: 030
     Dates: start: 19980601, end: 20030101
  2. AVONEX [Suspect]
     Indication: MULTIPLE SCLEROSIS
     Dosage: 30 UG; QW; IM
     Route: 030
     Dates: start: 20030101
  3. PAXIL [Concomitant]
  4. EPITOL [Concomitant]
  5. IBUPROFEN [Concomitant]

REACTIONS (4)
  - INSOMNIA [None]
  - INTERVERTEBRAL DISC PROTRUSION [None]
  - NERVE ROOT INJURY CERVICAL [None]
  - SPINAL OSTEOARTHRITIS [None]
